FAERS Safety Report 6961290-4 (Version None)
Quarter: 2010Q3

REPORT INFORMATION
  Report Type: 
  Country: None (occurrence: None)
  Receive Date: 20100901
  Receipt Date: 20100827
  Transmission Date: 20110219
  Serious: Yes (Other)
  Sender: FDA-Public Use
  Company Number: A0878130A

PATIENT
  Sex: Female

DRUGS (14)
  1. FLOVENT [Suspect]
     Indication: ASTHMA
     Dosage: 100MCG TWICE PER DAY
     Route: 055
     Dates: end: 20100826
  2. VENTOLIN [Concomitant]
  3. SINGULAIR [Concomitant]
  4. DILTIAZEM [Concomitant]
  5. LISINOPRIL [Concomitant]
  6. OXYBUTYNIN [Concomitant]
  7. SIMVASTATIN [Concomitant]
  8. FEXOFENADINE HCL [Concomitant]
  9. AMITRIPTYLINE HYDROCHLORIDE [Concomitant]
  10. FOSAMAX [Concomitant]
  11. VOLTAREN [Concomitant]
  12. MULTI-VITAMINS [Concomitant]
  13. CALCIUM [Concomitant]
  14. UNSPECIFIED MEDICATION [Concomitant]

REACTIONS (3)
  - CANDIDIASIS [None]
  - CATARACT [None]
  - CREPITATIONS [None]
